FAERS Safety Report 23079261 (Version 1)
Quarter: 2023Q4

REPORT INFORMATION
  Report Type: Other
  Country: CN (occurrence: CN)
  Receive Date: 20231018
  Receipt Date: 20231018
  Transmission Date: 20240110
  Serious: Yes (Life-Threatening, Hospitalization)
  Sender: FDA-Public Use
  Company Number: CN-GE HEALTHCARE-2023CSU009163

PATIENT
  Age: 78 Year
  Sex: Female

DRUGS (2)
  1. OMNIPAQUE [Suspect]
     Active Substance: IOHEXOL
     Indication: Computerised tomogram
     Dosage: 60 ML, SINGLE
     Route: 042
     Dates: start: 20231006, end: 20231006
  2. OMNIPAQUE [Suspect]
     Active Substance: IOHEXOL
     Indication: Lung neoplasm malignant

REACTIONS (7)
  - Loss of consciousness [Recovering/Resolving]
  - Dizziness [Recovering/Resolving]
  - Dyspnoea [Recovering/Resolving]
  - Oxygen saturation immeasurable [Recovering/Resolving]
  - Blood pressure decreased [Recovering/Resolving]
  - Urinary incontinence [Recovering/Resolving]
  - Anal incontinence [Recovering/Resolving]

NARRATIVE: CASE EVENT DATE: 20231006
